FAERS Safety Report 4620659-3 (Version None)
Quarter: 2005Q1

REPORT INFORMATION
  Report Type: 
  Country: None (occurrence: None)
  Receive Date: 20050325
  Receipt Date: 20050316
  Transmission Date: 20050727
  Serious: Yes (Death)
  Sender: FDA-Public Use
  Company Number: 200510518BWH

PATIENT
  Age: 88 Year
  Sex: Female

DRUGS (1)
  1. APROTININ [Suspect]
     Indication: CARDIAC OPERATION
     Dates: start: 20040101

REACTIONS (2)
  - BRADYCARDIA [None]
  - POST PROCEDURAL COMPLICATION [None]
